FAERS Safety Report 17955572 (Version 1)
Quarter: 2020Q2

REPORT INFORMATION
  Report Type: Spontaneous
  Country: US (occurrence: US)
  Receive Date: 20200627
  Receipt Date: 20200627
  Transmission Date: 20200714
  Serious: Yes (Hospitalization)
  Sender: FDA-Public Use
  Company Number: None

PATIENT
  Age: 62 Year
  Sex: Female
  Weight: 57.7 kg

DRUGS (1)
  1. DOXIL [Suspect]
     Active Substance: DOXORUBICIN HYDROCHLORIDE
     Dates: end: 20200501

REACTIONS (6)
  - Abdominal discomfort [None]
  - Ascites [None]
  - Ileus [None]
  - Mesenteric neoplasm [None]
  - Small intestinal obstruction [None]
  - Pleural effusion [None]

NARRATIVE: CASE EVENT DATE: 20200506
